FAERS Safety Report 15915772 (Version 1)
Quarter: 2019Q1

REPORT INFORMATION
  Report Type: Spontaneous
  Country: US (occurrence: US)
  Receive Date: 20190204
  Receipt Date: 20190204
  Transmission Date: 20190417
  Serious: No
  Sender: FDA-Public Use
  Company Number: US-ABBVIE-18K-163-2556318-00

PATIENT
  Age: 57 Year
  Sex: Female
  Weight: 73.55 kg

DRUGS (3)
  1. TRINTELLIX [Concomitant]
     Active Substance: VORTIOXETINE HYDROBROMIDE
     Indication: MEMORY IMPAIRMENT
  2. HUMIRA [Suspect]
     Active Substance: ADALIMUMAB
     Indication: UVEITIS
     Route: 058
     Dates: start: 2014
  3. ZOMIG [Concomitant]
     Active Substance: ZOLMITRIPTAN
     Indication: MIGRAINE

REACTIONS (4)
  - Wrong technique in product usage process [Recovered/Resolved]
  - Incorrect dose administered [Recovered/Resolved]
  - Injection site pain [Recovered/Resolved]
  - Injury associated with device [Recovered/Resolved]

NARRATIVE: CASE EVENT DATE: 20181111
